FAERS Safety Report 6160487-3 (Version None)
Quarter: 2009Q2

REPORT INFORMATION
  Report Type: 
  Country: None (occurrence: None)
  Receive Date: 20090420
  Receipt Date: 20090306
  Transmission Date: 20091009
  Serious: Yes (Death, Hospitalization)
  Sender: FDA-Public Use
  Company Number: FR-PFIZER INC-2009165828

PATIENT
  Sex: Male

DRUGS (3)
  1. SULFASALAZINE [Suspect]
     Indication: POLYARTHRITIS
     Route: 048
     Dates: start: 20081101, end: 20081201
  2. AMOXICILLIN [Concomitant]
     Route: 048
     Dates: start: 20081125, end: 20081127
  3. CLOBAZAM [Concomitant]

REACTIONS (1)
  - DRUG RASH WITH EOSINOPHILIA AND SYSTEMIC SYMPTOMS [None]
